FAERS Safety Report 4678251-0 (Version None)
Quarter: 2005Q2

REPORT INFORMATION
  Report Type: 
  Country: None (occurrence: None)
  Receive Date: 20050601
  Receipt Date: 20050524
  Transmission Date: 20051028
  Serious: Yes (Other)
  Sender: FDA-Public Use
  Company Number: 200511505JP

PATIENT
  Sex: Female

DRUGS (3)
  1. LANTUS [Suspect]
     Dosage: DOSE UNIT: UNITS
     Route: 058
  2. OPTIPEN (INSULIN PUMP) [Suspect]
  3. INSULIN NOS [Concomitant]
     Dosage: DOSE: 3-4; DOSE UNIT: UNITS
     Route: 058

REACTIONS (1)
  - LOSS OF CONSCIOUSNESS [None]
